FAERS Safety Report 21872511 (Version 1)
Quarter: 2023Q1

REPORT INFORMATION
  Report Type: Spontaneous
  Country: FR (occurrence: FR)
  Receive Date: 20230117
  Receipt Date: 20230117
  Transmission Date: 20230418
  Serious: Yes (Hospitalization, Other)
  Sender: FDA-Public Use
  Company Number: None

PATIENT
  Age: 39 Year
  Sex: Female

DRUGS (8)
  1. PROPOFOL [Suspect]
     Active Substance: PROPOFOL
     Indication: General anaesthesia
     Dosage: ROA-20045000
     Route: 042
     Dates: start: 20220810, end: 20220810
  2. ONDANSETRON [Suspect]
     Active Substance: ONDANSETRON
     Indication: General anaesthesia
     Dosage: LAST DOSE 10-AUG-2022?ROA-20045000
     Route: 042
     Dates: start: 20220810, end: 20220810
  3. CIMETIDINE [Suspect]
     Active Substance: CIMETIDINE
     Indication: Anaesthetic premedication
     Dosage: ROA-20053000?LAST DOSE 10-AUG-2022
     Route: 048
     Dates: start: 20220810
  4. ATRACURIUM [Suspect]
     Active Substance: ATRACURIUM
     Indication: General anaesthesia
     Dosage: ROA-20045000?LAST DOSE 10-AUG-2022
     Route: 042
     Dates: start: 20220810, end: 20220810
  5. SUFENTANIL [Suspect]
     Active Substance: SUFENTANIL
     Indication: General anaesthesia
     Dosage: ROA-20045000?LAST DOSE: 10-AUG-2022
     Route: 042
     Dates: start: 20220810, end: 20220810
  6. KETAMINE [Suspect]
     Active Substance: KETAMINE
     Indication: General anaesthesia
     Dosage: LAST DOSE 10-AUG-2022?ROA-20045000
     Route: 042
     Dates: start: 20220810, end: 20220810
  7. MIDAZOLAM [Suspect]
     Active Substance: MIDAZOLAM
     Indication: General anaesthesia
     Dosage: ROA-20045000?LAST DOSE 10-AUG-2022
     Route: 042
     Dates: start: 20220810, end: 20220810
  8. DEXAMETHASONE [Concomitant]
     Active Substance: DEXAMETHASONE
     Indication: General anaesthesia
     Dosage: ROA-20045000?LAST DOSE 10-AUG-2022
     Route: 042
     Dates: start: 20220810, end: 20220810

REACTIONS (1)
  - Anaphylactic shock [Recovered/Resolved]

NARRATIVE: CASE EVENT DATE: 20220810
